FAERS Safety Report 4366123-0 (Version None)
Quarter: 2004Q2

REPORT INFORMATION
  Report Type: 
  Country: None (occurrence: None)
  Receive Date: 20040527
  Receipt Date: 20040414
  Transmission Date: 20050107
  Serious: Yes (Other)
  Sender: FDA-Public Use
  Company Number: PHFR2004GB01783

PATIENT

DRUGS (1)
  1. NEORAL [Suspect]
     Indication: HEART TRANSPLANT
     Route: 065

REACTIONS (4)
  - FASCIITIS [None]
  - GRAFT VERSUS HOST DISEASE [None]
  - POLYMYOSITIS [None]
  - SCLERODERMA [None]
